FAERS Safety Report 10850432 (Version 2)
Quarter: 2015Q2

REPORT INFORMATION
  Report Type: Spontaneous
  Country: GB (occurrence: GB)
  Receive Date: 20150222
  Receipt Date: 20150402
  Transmission Date: 20150821
  Serious: Yes (Death, Hospitalization, Other)
  Sender: FDA-Public Use
  Company Number: PHFR2015GB001695

PATIENT
  Age: 66 Year
  Sex: Female
  Weight: 62.4 kg

DRUGS (3)
  1. THYROXINE [Concomitant]
     Active Substance: LEVOTHYROXINE
     Indication: PRODUCT USED FOR UNKNOWN INDICATION
     Dosage: UNK
     Route: 048
  2. CLOZARIL [Suspect]
     Active Substance: CLOZAPINE
     Indication: BIPOLAR DISORDER
     Dosage: 50 MG, QD
     Route: 048
     Dates: start: 20150112
  3. MORPHINE [Concomitant]
     Active Substance: MORPHINE
     Indication: PRODUCT USED FOR UNKNOWN INDICATION
     Dosage: UNK
     Route: 048

REACTIONS (4)
  - Cardiac arrest [Unknown]
  - Sepsis [Fatal]
  - Hypotension [Unknown]
  - Lower respiratory tract infection [Fatal]

NARRATIVE: CASE EVENT DATE: 20150219
